FAERS Safety Report 12261499 (Version 1)
Quarter: 2016Q2

REPORT INFORMATION
  Report Type: Spontaneous
  Country: US (occurrence: None)
  Receive Date: 20160412
  Receipt Date: 20160412
  Transmission Date: 20160815
  Serious: No
  Sender: FDA-Public Use
  Company Number: None

PATIENT

DRUGS (1)
  1. ENOXAPARIN SODIUM (GENERIC LOVENOX) [Suspect]
     Active Substance: ENOXAPARIN SODIUM
     Dates: start: 201603, end: 20160330

REACTIONS (3)
  - Drug level decreased [None]
  - Product formulation issue [None]
  - Drug effect decreased [None]

NARRATIVE: CASE EVENT DATE: 20160330
